FAERS Safety Report 7047155-0 (Version None)
Quarter: 2010Q4

REPORT INFORMATION
  Report Type: 
  Country: None (occurrence: None)
  Receive Date: 20101015
  Receipt Date: 20101005
  Transmission Date: 20110411
  Serious: Yes (Other)
  Sender: FDA-Public Use
  Company Number: GB-NOVOPROD-314120

PATIENT
  Age: 59 Year
  Sex: Female
  Weight: 112.1 kg

DRUGS (2)
  1. VICTOZA [Suspect]
     Indication: PRODUCT USED FOR UNKNOWN INDICATION
     Dosage: 0.6 MG, QD
     Route: 058
     Dates: start: 20100803
  2. VICTOZA [Suspect]
     Dosage: 1.2 MG, QD

REACTIONS (2)
  - AGGRESSION [None]
  - PSYCHOTIC BEHAVIOUR [None]
